FAERS Safety Report 17409593 (Version 1)
Quarter: 2020Q1

REPORT INFORMATION
  Report Type: Spontaneous
  Country: FR (occurrence: FR)
  Receive Date: 20200212
  Receipt Date: 20200212
  Transmission Date: 20200409
  Serious: Yes (Other)
  Sender: FDA-Public Use
  Company Number: FR-009507513-2002FRA003245

PATIENT
  Sex: Male

DRUGS (2)
  1. FORTZAAR 100 MG/12.5 MG COMPRIME PELLICULE [Suspect]
     Active Substance: HYDROCHLOROTHIAZIDE\LOSARTAN POTASSIUM
     Dosage: 1 TABLET IN THE EVENING
     Route: 048
  2. FORTZAAR 100 MG/12.5 MG COMPRIME PELLICULE [Suspect]
     Active Substance: HYDROCHLOROTHIAZIDE\LOSARTAN POTASSIUM
     Dosage: UNK, INITIAL DOSAGE WAS NOT SPECIFIED, INCREASED WITH TIME
     Route: 048
     Dates: start: 1995

REACTIONS (7)
  - Depressed mood [Recovering/Resolving]
  - Somnolence [Recovering/Resolving]
  - Stent placement [Unknown]
  - Stent placement [Unknown]
  - Cerebrovascular accident [Recovering/Resolving]
  - Blepharospasm [Recovering/Resolving]
  - Fatigue [Recovering/Resolving]

NARRATIVE: CASE EVENT DATE: 2016
